FAERS Safety Report 8859257 (Version 91)
Quarter: 2024Q1

REPORT INFORMATION
  Report Type: Other
  Country: CA (occurrence: None)
  Receive Date: 20121024
  Receipt Date: 20240318
  Transmission Date: 20240410
  Serious: Yes (Life-Threatening, Hospitalization, Other)
  Sender: FDA-Public Use
  Company Number: CA-ROCHE-1109752

PATIENT
  Sex: Female
  Weight: 58 kg

DRUGS (29)
  1. ACTEMRA [Suspect]
     Active Substance: TOCILIZUMAB
     Indication: Rheumatoid arthritis
     Route: 042
     Dates: start: 20110322, end: 20140124
  2. ACTEMRA [Suspect]
     Active Substance: TOCILIZUMAB
     Dosage: ADDITIONAL BATCH/LOT FROM 29-JUL-2014 (B20303 OCT-2015)
     Route: 042
     Dates: start: 20140226, end: 20140729
  3. ACTEMRA [Suspect]
     Active Substance: TOCILIZUMAB
     Dosage: ADDITIONAL BATCH/LOT FROM 23-MAR-2016: B2058 (30-SEP-2017)
     Route: 042
     Dates: start: 20140826, end: 20160323
  4. ACTEMRA [Suspect]
     Active Substance: TOCILIZUMAB
     Route: 042
     Dates: start: 20160419, end: 20170222
  5. ACTEMRA [Suspect]
     Active Substance: TOCILIZUMAB
     Route: 042
     Dates: start: 20170322, end: 20180222
  6. ACTEMRA [Suspect]
     Active Substance: TOCILIZUMAB
     Dosage: ADDITIONAL BATCH/LOT FROM 11-MAR-2019: B2081 (30-NOV-2020)
     Route: 042
     Dates: start: 20180322, end: 20190311
  7. ACTEMRA [Suspect]
     Active Substance: TOCILIZUMAB
     Dosage: INFUSION NO.88
     Route: 042
     Dates: start: 20180419
  8. ACTEMRA [Suspect]
     Active Substance: TOCILIZUMAB
     Dosage: INFUSION NO.89
     Route: 042
     Dates: start: 20180614
  9. ACTEMRA [Suspect]
     Active Substance: TOCILIZUMAB
     Route: 042
     Dates: start: 20180712
  10. ACTEMRA [Suspect]
     Active Substance: TOCILIZUMAB
     Dosage: ADDITIONAL BATCH/LOT FROM 12-MAR-2020: B2086 30-NOV-2021
     Route: 042
     Dates: start: 20190412, end: 20200312
  11. ACTEMRA [Suspect]
     Active Substance: TOCILIZUMAB
     Route: 042
     Dates: start: 20110322, end: 20200414
  12. ACTEMRA [Suspect]
     Active Substance: TOCILIZUMAB
     Dosage: ADDITIONAL BATCH/LOT FROM 04-NOV-2020: B2090EXPIRY: 31-MAY-2022
     Route: 042
     Dates: start: 20200414, end: 20201104
  13. ACTEMRA [Suspect]
     Active Substance: TOCILIZUMAB
     Dosage: ADDITIONAL BATCH/LOT FROM 11-JUN-2021: B3034 (30-JUN-2022); B3034 (31-JAN-2023)
     Route: 042
     Dates: start: 20201202, end: 20210611
  14. ACTEMRA [Suspect]
     Active Substance: TOCILIZUMAB
     Route: 042
     Dates: start: 20210709
  15. ACTEMRA [Suspect]
     Active Substance: TOCILIZUMAB
     Route: 042
     Dates: start: 20200715, end: 20201104
  16. ACTEMRA [Suspect]
     Active Substance: TOCILIZUMAB
     Indication: Rheumatoid arthritis
     Dosage: ACTSC5933
     Route: 058
     Dates: start: 20200511, end: 202006
  17. RAMIPRIL [Concomitant]
     Active Substance: RAMIPRIL
     Indication: Product used for unknown indication
  18. VITAMIN C [Concomitant]
     Active Substance: ASCORBIC ACID
     Indication: Product used for unknown indication
  19. METHOTREXATE [Concomitant]
     Active Substance: METHOTREXATE
     Indication: Product used for unknown indication
     Route: 058
     Dates: start: 20080205
  20. PREDNISONE [Concomitant]
     Active Substance: PREDNISONE
     Indication: Product used for unknown indication
     Dates: start: 2010
  21. SOLU-MEDROL [Concomitant]
     Active Substance: METHYLPREDNISOLONE SODIUM SUCCINATE
     Dates: start: 20080205
  22. QUETIAPINE [Concomitant]
     Active Substance: QUETIAPINE
     Indication: Product used for unknown indication
  23. LURASIDONE HYDROCHLORIDE [Concomitant]
     Active Substance: LURASIDONE HYDROCHLORIDE
     Dates: start: 201408
  24. LORATADINE [Concomitant]
     Active Substance: LORATADINE
     Indication: Product used for unknown indication
  25. TYLENOL WITH CODEINE [Concomitant]
     Active Substance: ACETAMINOPHEN\CODEINE PHOSPHATE
     Indication: Product used for unknown indication
  26. LURASIDONE [Concomitant]
     Active Substance: LURASIDONE
  27. LOVENOX [Concomitant]
     Active Substance: ENOXAPARIN SODIUM
  28. PRIDINOL [Concomitant]
     Active Substance: PRIDINOL
  29. CORTISONE [Concomitant]
     Active Substance: CORTISONE

REACTIONS (54)
  - Silent myocardial infarction [Unknown]
  - Pneumonia [Unknown]
  - Depression [Not Recovered/Not Resolved]
  - Bipolar disorder [Unknown]
  - Type 2 diabetes mellitus [Not Recovered/Not Resolved]
  - Tobacco withdrawal symptoms [Unknown]
  - Osteoarthritis [Not Recovered/Not Resolved]
  - Oral herpes [Unknown]
  - Fungal skin infection [Unknown]
  - Hepatic enzyme increased [Not Recovered/Not Resolved]
  - Lower respiratory tract infection [Recovered/Resolved]
  - Arthralgia [Not Recovered/Not Resolved]
  - Weight increased [Not Recovered/Not Resolved]
  - Musculoskeletal stiffness [Not Recovered/Not Resolved]
  - Weight decreased [Not Recovered/Not Resolved]
  - Stress [Not Recovered/Not Resolved]
  - Hair disorder [Recovered/Resolved]
  - Pain in extremity [Unknown]
  - Oropharyngeal pain [Recovered/Resolved]
  - Sunburn [Recovering/Resolving]
  - Hypotension [Unknown]
  - Infusion related reaction [Unknown]
  - Oxygen saturation decreased [Unknown]
  - Hypotension [Unknown]
  - Blood pressure increased [Unknown]
  - Blood pressure systolic increased [Unknown]
  - Blood pressure fluctuation [Unknown]
  - Ill-defined disorder [Recovering/Resolving]
  - Rheumatoid arthritis [Not Recovered/Not Resolved]
  - Spondylitis [Not Recovered/Not Resolved]
  - Nasopharyngitis [Not Recovered/Not Resolved]
  - Disability assessment scale score increased [Recovering/Resolving]
  - Ear infection [Recovered/Resolved]
  - Gastroenteritis viral [Recovered/Resolved]
  - Blood pressure diastolic decreased [Unknown]
  - Off label use [Unknown]
  - Gait inability [Not Recovered/Not Resolved]
  - Blood pressure systolic abnormal [Not Recovered/Not Resolved]
  - Oxygen saturation decreased [Unknown]
  - Gait inability [Unknown]
  - Hip fracture [Unknown]
  - Urinary tract infection [Recovered/Resolved]
  - Fall [Unknown]
  - Bone disorder [Unknown]
  - Pain [Not Recovered/Not Resolved]
  - Heart rate decreased [Unknown]
  - Joint effusion [Unknown]
  - Post procedural complication [Recovering/Resolving]
  - Post procedural infection [Unknown]
  - Gait disturbance [Unknown]
  - Fluid retention [Unknown]
  - Drainage [Unknown]
  - Arthropathy [Unknown]
  - Ankle fracture [Unknown]

NARRATIVE: CASE EVENT DATE: 20120101
